FAERS Safety Report 7471720-X (Version None)
Quarter: 2011Q1

REPORT INFORMATION
  Report Type: 
  Country: None (occurrence: None)
  Receive Date: 20110302
  Receipt Date: 20100728
  Transmission Date: 20110831
  Serious: Yes (Other)
  Sender: FDA-Public Use
  Company Number: 163-21880-10072914

PATIENT
  Age: 56 Year
  Sex: Female

DRUGS (4)
  1. REVLIMID [Suspect]
     Indication: MULTIPLE MYELOMA
     Dosage: 25 MG, DAILY X 21 DAYS/OFF 7 DAYS, PO
     Route: 048
     Dates: start: 20010715
  2. BIAXIN [Concomitant]
  3. NEXIUM [Concomitant]
  4. DEXAMETHASONE [Concomitant]

REACTIONS (7)
  - SYNCOPE [None]
  - HYPOAESTHESIA [None]
  - DYSPNOEA [None]
  - DIZZINESS [None]
  - PLEURITIC PAIN [None]
  - MUSCLE SPASMS [None]
  - INSOMNIA [None]
